FAERS Safety Report 7446865-0 (Version None)
Quarter: 2011Q2

REPORT INFORMATION
  Report Type: 
  Country: None (occurrence: None)
  Receive Date: 20110429
  Receipt Date: 20110425
  Transmission Date: 20111010
  Serious: Yes (Other)
  Sender: FDA-Public Use
  Company Number: JP-BRISTOL-MYERS SQUIBB COMPANY-15693765

PATIENT
  Sex: Female

DRUGS (2)
  1. CISPLATIN [Suspect]
  2. TAXOL [Suspect]

REACTIONS (4)
  - ALOPECIA [None]
  - HEARING IMPAIRED [None]
  - ARTHRALGIA [None]
  - HYPERSENSITIVITY [None]
